FAERS Safety Report 23510260 (Version 1)
Quarter: 2024Q1

REPORT INFORMATION
  Report Type: Spontaneous
  Country: FR (occurrence: FR)
  Receive Date: 20240211
  Receipt Date: 20240211
  Transmission Date: 20240410
  Serious: Yes (Other)
  Sender: FDA-Public Use
  Company Number: FR-AFSSAPS-LL2024000153

PATIENT
  Age: 36 Year
  Sex: Male
  Weight: 118 kg

DRUGS (2)
  1. DICLOFENAC [Suspect]
     Active Substance: DICLOFENAC
     Indication: Muscle spasms
     Dosage: 2 DOSAGE FORM
     Route: 048
     Dates: start: 20240123, end: 20240124
  2. DICLOFENAC [Suspect]
     Active Substance: DICLOFENAC
     Indication: Neck pain

REACTIONS (2)
  - Diarrhoea haemorrhagic [Recovering/Resolving]
  - Abdominal pain [Recovering/Resolving]

NARRATIVE: CASE EVENT DATE: 20240124
